FAERS Safety Report 6714903-6 (Version None)
Quarter: 2010Q2

REPORT INFORMATION
  Report Type: 
  Country: None (occurrence: None)
  Receive Date: 20100506
  Receipt Date: 20100506
  Transmission Date: 20101027
  Serious: Yes (Hospitalization, Other)
  Sender: FDA-Public Use
  Company Number: None

PATIENT
  Age: 18 Month
  Sex: Female
  Weight: 10.4327 kg

DRUGS (1)
  1. TYLENOL (CAPLET) [Suspect]
     Indication: PYREXIA
     Dosage: 1.2 ML EVERY 6 HRS. PO
     Route: 048
     Dates: start: 20100407, end: 20100409

REACTIONS (5)
  - CONVULSION [None]
  - DRUG INEFFECTIVE [None]
  - PRODUCT COLOUR ISSUE [None]
  - PRODUCT QUALITY ISSUE [None]
  - PYREXIA [None]
